FAERS Safety Report 9250440 (Version 2)
Quarter: 2013Q4

REPORT INFORMATION
  Report Type: Spontaneous
  Country: US (occurrence: None)
  Receive Date: 20121114
  Receipt Date: 20131120
  Transmission Date: 20140711
  Serious: Yes (Hospitalization)
  Sender: FDA-Public Use
  Company Number: A-NJ2012-59361

PATIENT
  Age: 60 Year
  Sex: Female

DRUGS (2)
  1. VENTAVIS [Suspect]
     Indication: PULMONARY ARTERIAL HYPERTENSION
     Route: 055
  2. ADCIRCA (TADALAFIL) [Concomitant]

REACTIONS (3)
  - Productive cough [None]
  - Treatment noncompliance [None]
  - Pneumonia [None]
